FAERS Safety Report 4613159-8 (Version None)
Quarter: 2005Q1

REPORT INFORMATION
  Report Type: 
  Country: None (occurrence: None)
  Receive Date: 20050316
  Receipt Date: 20050302
  Transmission Date: 20050727
  Serious: Yes (Death)
  Sender: FDA-Public Use
  Company Number: USA040671279

PATIENT
  Age: 76 Year
  Sex: Female

DRUGS (10)
  1. FORTEO [Suspect]
     Indication: OSTEOPOROSIS
     Dosage: 20- UG DAY
     Dates: start: 20040621
  2. TRIAMTERENE/HYDROCHOROTHIAZIDE [Concomitant]
  3. WARFARIN [Concomitant]
  4. SOTALOL HCL [Concomitant]
  5. LISINOPRIL [Concomitant]
  6. PREMARIN [Concomitant]
  7. HYTRIN [Concomitant]
  8. FOLIC ACID [Concomitant]
  9. ALPHAGEN P (BRIMONIDINE TARTRATE) [Concomitant]
  10. XALATAN [Concomitant]

REACTIONS (14)
  - ARTHRALGIA [None]
  - BLOOD PRESSURE FLUCTUATION [None]
  - CONSTIPATION [None]
  - DYSPHAGIA [None]
  - FEELING ABNORMAL [None]
  - GAIT DISTURBANCE [None]
  - HEADACHE [None]
  - INJECTION SITE HAEMORRHAGE [None]
  - MUSCLE SPASMS [None]
  - OSTEOPENIA [None]
  - PAIN IN EXTREMITY [None]
  - PERIPHERAL COLDNESS [None]
  - PHARMACEUTICAL PRODUCT COMPLAINT [None]
  - TINNITUS [None]
